FAERS Safety Report 4577582-2 (Version None)
Quarter: 2005Q1

REPORT INFORMATION
  Report Type: 
  Country: None (occurrence: None)
  Receive Date: 20050208
  Receipt Date: 20050124
  Transmission Date: 20050727
  Serious: Yes (Hospitalization)
  Sender: FDA-Public Use
  Company Number: 2005S1000027

PATIENT
  Age: 79 Year
  Sex: Male

DRUGS (1)
  1. ACITRETIN (ACITRETIN) [Suspect]
     Indication: PSORIASIS
     Dosage: 10 MG; QD ; PO
     Route: 048

REACTIONS (11)
  - CAPILLARY LEAK SYNDROME [None]
  - HAEMORRHAGE [None]
  - HYPERPLASIA [None]
  - HYPOALBUMINAEMIA [None]
  - HYPOPROTEINAEMIA [None]
  - LYMPHADENOPATHY [None]
  - OEDEMA [None]
  - RHABDOMYOLYSIS [None]
  - SKIN LESION [None]
  - THERAPY NON-RESPONDER [None]
  - WEIGHT INCREASED [None]
